FAERS Safety Report 8560507-2 (Version None)
Quarter: 2012Q3

REPORT INFORMATION
  Report Type: 
  Country: None (occurrence: None)
  Receive Date: 20120802
  Receipt Date: 20070604
  Transmission Date: 20120928
  Serious: Yes (Death)
  Sender: FDA-Public Use
  Company Number: CO-PFIZER INC-2012185597

PATIENT
  Age: 68 Year
  Sex: Male

DRUGS (6)
  1. NORVASC [Suspect]
     Dosage: 5 MG, 2X/DAY
     Route: 048
  2. ACCUPRIL [Suspect]
     Dosage: 20 MG, 1X/DAY
     Route: 048
  3. LIPITOR [Suspect]
     Dosage: 10 MG, 1X/DAY
     Route: 048
  4. FERROUS SULFATE [Concomitant]
     Dosage: 100-300 MG, 1X/DAY
     Route: 048
  5. FOLIC ACID [Concomitant]
     Dosage: 1 MG, 1X/DAY
     Route: 048
  6. FUROSEMIDE [Concomitant]
     Dosage: 40 MG, 1X/DAY
     Route: 048

REACTIONS (3)
  - DEATH [None]
  - OEDEMA PERIPHERAL [None]
  - DYSPNOEA [None]
